FAERS Safety Report 19622937 (Version 1)
Quarter: 2021Q3

REPORT INFORMATION
  Report Type: Spontaneous
  Country: JP (occurrence: JP)
  Receive Date: 20210728
  Receipt Date: 20210728
  Transmission Date: 20211014
  Serious: Yes (Hospitalization)
  Sender: FDA-Public Use
  Company Number: JP-BRISTOL-MYERS SQUIBB COMPANY-BMS-2021-072790

PATIENT
  Age: 61 Year
  Sex: Male
  Weight: 91.7 kg

DRUGS (6)
  1. ELIQUIS [Suspect]
     Active Substance: APIXABAN
     Indication: VENOUS THROMBOSIS
     Dosage: 20 MILLIGRAM
     Route: 065
  2. PREDNISOLONE. [Concomitant]
     Active Substance: PREDNISOLONE
     Dosage: 5 MILLIGRAM
     Route: 048
  3. PREDNISOLONE. [Concomitant]
     Active Substance: PREDNISOLONE
     Indication: CEREBROVASCULAR DISORDER
     Dosage: 45 MILLIGRAM
     Route: 048
  4. HEPARIN [Concomitant]
     Active Substance: HEPARIN SODIUM
     Indication: CEREBRAL INFARCTION
     Dosage: 200 MILLIGRAM
     Route: 065
  5. ASPIRIN (E.C.) [Concomitant]
     Active Substance: ASPIRIN
     Indication: CEREBRAL INFARCTION
     Dosage: 200 MILLIGRAM
     Route: 065
  6. PREDNISOLONE. [Concomitant]
     Active Substance: PREDNISOLONE
     Dosage: 30 MILLIGRAM
     Route: 048

REACTIONS (1)
  - Dermatitis allergic [Unknown]
